FAERS Safety Report 21394755 (Version 2)
Quarter: 2022Q4

REPORT INFORMATION
  Report Type: Spontaneous
  Country: US (occurrence: US)
  Receive Date: 20220930
  Receipt Date: 20221007
  Transmission Date: 20230112
  Serious: No
  Sender: FDA-Public Use
  Company Number: US-JNJFOC-20220939249

PATIENT
  Sex: Female

DRUGS (1)
  1. IMODIUM MULTI-SYMPTOM RELIEF [Suspect]
     Active Substance: DIMETHICONE\LOPERAMIDE HYDROCHLORIDE
     Indication: Product used for unknown indication
     Dosage: 3 CAPLET AND ANOTHER ONE CAPLET. TWICE A DAY.
     Route: 065
     Dates: start: 20220919

REACTIONS (2)
  - Incorrect dose administered [Unknown]
  - Drug ineffective [Unknown]
